FAERS Safety Report 5854217-X (Version None)
Quarter: 2008Q3

REPORT INFORMATION
  Report Type: 
  Country: None (occurrence: None)
  Receive Date: 20080822
  Receipt Date: 20080815
  Transmission Date: 20090109
  Serious: Yes (Other)
  Sender: FDA-Public Use
  Company Number: PHEH2008US07233

PATIENT
  Sex: Male

DRUGS (1)
  1. RECLAST [Suspect]

REACTIONS (3)
  - BALANCE DISORDER [None]
  - DIZZINESS [None]
  - FALL [None]
